FAERS Safety Report 4415868-2 (Version None)
Quarter: 2004Q3

REPORT INFORMATION
  Report Type: 
  Country: None (occurrence: None)
  Receive Date: 20040805
  Receipt Date: 20040412
  Transmission Date: 20050211
  Serious: No
  Sender: FDA-Public Use
  Company Number: US-GLAXOSMITHKLINE-A0506535A

PATIENT
  Age: 53 Year
  Sex: Male
  Weight: 100.9 kg

DRUGS (2)
  1. AVANDAMET [Suspect]
     Indication: DIABETES MELLITUS
     Route: 048
     Dates: start: 20040302, end: 20040315
  2. LIPITOR [Concomitant]
     Dosage: 10MG PER DAY
     Dates: start: 20040302

REACTIONS (1)
  - VISUAL DISTURBANCE [None]
